FAERS Safety Report 21381140 (Version 2)
Quarter: 2022Q4

REPORT INFORMATION
  Report Type: Report from Study
  Country: SE (occurrence: SE)
  Receive Date: 20220927
  Receipt Date: 20221005
  Transmission Date: 20230112
  Serious: Yes (Disabling, Other)
  Sender: FDA-Public Use
  Company Number: SE-PFIZER INC-2020346071

PATIENT
  Age: 12 Year
  Sex: Female
  Weight: 44.9 kg

DRUGS (3)
  1. LORLATINIB [Suspect]
     Active Substance: LORLATINIB
     Indication: Neuroblastoma
     Dosage: 90 MG, DAILY
     Route: 048
     Dates: start: 20200204
  2. LORLATINIB [Suspect]
     Active Substance: LORLATINIB
     Dosage: 90 MG, DAILY
     Route: 048
     Dates: start: 20200204
  3. LORLATINIB [Suspect]
     Active Substance: LORLATINIB
     Dosage: 100 MG, 1X/DAY
     Route: 048
     Dates: start: 20200204, end: 20201226

REACTIONS (6)
  - Weight increased [Not Recovered/Not Resolved]
  - Hyperlipidaemia [Not Recovered/Not Resolved]
  - Pyelonephritis [Recovered/Resolved]
  - Hypothyroidism [Recovering/Resolving]
  - Hypogonadism [Recovering/Resolving]
  - Urinary incontinence [Not Recovered/Not Resolved]

NARRATIVE: CASE EVENT DATE: 20200818
